FAERS Safety Report 25048590 (Version 2)
Quarter: 2025Q2

REPORT INFORMATION
  Report Type: Spontaneous
  Country: JP (occurrence: JP)
  Receive Date: 20250307
  Receipt Date: 20250404
  Transmission Date: 20250717
  Serious: Yes (Other)
  Sender: MERCK SHARP AND DOHME
  Company Number: JP-009507513-2260704

PATIENT
  Age: 61 Year
  Sex: Female

DRUGS (2)
  1. KEYTRUDA [Suspect]
     Active Substance: PEMBROLIZUMAB
     Indication: Uterine cancer
     Route: 041
     Dates: start: 20241024, end: 20241226
  2. LENVIMA [Suspect]
     Active Substance: LENVATINIB
     Indication: Uterine cancer
     Route: 048
     Dates: start: 20241024, end: 20250130

REACTIONS (3)
  - Pneumatosis intestinalis [Recovered/Resolved]
  - Diarrhoea [Recovered/Resolved]
  - Physical deconditioning [Unknown]

NARRATIVE: CASE EVENT DATE: 20241201
